FAERS Safety Report 6003932-6 (Version None)
Quarter: 2008Q4

REPORT INFORMATION
  Report Type: 
  Country: None (occurrence: None)
  Receive Date: 20081216
  Receipt Date: 20081204
  Transmission Date: 20090506
  Serious: Yes (Death)
  Sender: FDA-Public Use
  Company Number: JP-PFIZER INC-2008093525

PATIENT

DRUGS (16)
  1. ADRIACIN [Suspect]
     Indication: BREAST CANCER
     Dosage: 68 MG, ONCE EVERY 3 WEEKS
     Dates: start: 20060713, end: 20060914
  2. TAXOL [Suspect]
     Indication: BREAST CANCER
     Dosage: 200 MG, ONCE EVERY 3 WEEKS
     Dates: start: 20060713, end: 20060914
  3. TAXOL [Suspect]
     Dosage: 108 MG, ONCE WEEKLY
     Dates: end: 20061220
  4. TRASTUZUMAB [Concomitant]
     Dosage: 415 MG
     Dates: start: 20080321, end: 20080321
  5. KYTRIL [Concomitant]
     Dosage: 3 MG, ONCE EVERY THREE WEEKS
     Dates: start: 20060713, end: 20060914
  6. DECADRON [Concomitant]
     Dosage: 20 MG, EVERY 3 WEEKS
     Dates: start: 20060713, end: 20060914
  7. DECADRON [Concomitant]
     Dosage: 4 MG, ONCE EVERY WEEK
     Dates: end: 20061220
  8. POLARAMINE [Concomitant]
     Dosage: 5 MG, ONCE EVERY 3 WEEKS
     Dates: start: 20060713, end: 20060914
  9. POLARAMINE [Concomitant]
     Dosage: 5 MG, ONCE EVERY WEEK
     Dates: end: 20061220
  10. ZANTAC [Concomitant]
     Dosage: 50 MG, ONCE EVERY 3 WEEKS
     Dates: start: 20060713, end: 20060914
  11. ZANTAC [Concomitant]
     Dosage: 50 MG, ONCE WEEKLY
     Dates: end: 20061220
  12. NASEA [Concomitant]
     Dosage: 0.1 MG, UNK
     Route: 048
     Dates: start: 20060713, end: 20060914
  13. NAUZELIN [Concomitant]
     Dosage: 30 MG
     Route: 048
     Dates: start: 20060713, end: 20060914
  14. FORSENID [Concomitant]
     Dosage: 24 MG, UNK
     Route: 048
     Dates: start: 20060713, end: 20060914
  15. NORVASC [Concomitant]
     Route: 048
  16. DECADRON [Concomitant]
     Dosage: 4 MG
     Route: 048
     Dates: start: 20060713, end: 20060914

REACTIONS (2)
  - ACUTE MYELOID LEUKAEMIA [None]
  - NEOPLASM MALIGNANT [None]
